FAERS Safety Report 9709287 (Version 2)
Quarter: 2013Q4

REPORT INFORMATION
  Report Type: Spontaneous
  Country: US (occurrence: US)
  Receive Date: 20131125
  Receipt Date: 20131125
  Transmission Date: 20140711
  Serious: Yes (Life-Threatening)
  Sender: FDA-Public Use
  Company Number: US-BIOMARINP-000745

PATIENT
  Age: 16 Year
  Sex: Female
  Weight: 59.4 kg

DRUGS (2)
  1. KUVAN [Suspect]
     Indication: PHENYLKETONURIA
     Dosage: 10MG/KG,QD
     Route: 048
     Dates: start: 20081001, end: 20081004
  2. MINOCYCLINE [Concomitant]
     Indication: PRODUCT USED FOR UNKNOWN INDICATION
     Dosage: 100MG,QD
     Dates: start: 200809, end: 20081005

REACTIONS (9)
  - Hypersensitivity [Recovering/Resolving]
  - Urticaria [Recovering/Resolving]
  - Oedema peripheral [Recovering/Resolving]
  - Oedema peripheral [Recovering/Resolving]
  - Pallor [Recovering/Resolving]
  - Dyspnoea [Recovering/Resolving]
  - Oesophageal disorder [Recovering/Resolving]
  - Oesophageal disorder [Recovering/Resolving]
  - Eyelid oedema [Recovering/Resolving]
